FAERS Safety Report 4406823-7 (Version None)
Quarter: 2004Q3

REPORT INFORMATION
  Report Type: 
  Country: None (occurrence: None)
  Receive Date: 20040723
  Receipt Date: 20020207
  Transmission Date: 20050211
  Serious: Yes (Hospitalization, Disabling)
  Sender: FDA-Public Use
  Company Number: US-MERCK-0202USA00857

PATIENT
  Age: 47 Year
  Sex: Female
  Weight: 86 kg

DRUGS (19)
  1. CLARITIN-D [Concomitant]
     Indication: SINUS DISORDER
     Route: 065
     Dates: start: 19970407, end: 20020128
  2. NASONEX [Concomitant]
     Indication: SINUS DISORDER
     Route: 065
     Dates: start: 19991227, end: 20020128
  3. NAPROSYN [Concomitant]
     Route: 065
     Dates: start: 19850101, end: 19970101
  4. INDERAL LA [Concomitant]
     Indication: MIGRAINE
     Route: 065
     Dates: start: 19970101
  5. INDERAL LA [Concomitant]
     Indication: CARDIAC DISORDER
     Route: 065
     Dates: start: 19970101
  6. PSEUDOEPHEDRINE [Concomitant]
     Route: 065
  7. ZANTAC [Concomitant]
     Indication: DYSPEPSIA
     Route: 065
     Dates: start: 20010101
  8. VIOXX [Suspect]
     Indication: OSTEOARTHRITIS
     Route: 048
     Dates: start: 20010501, end: 20020128
  9. VIOXX [Suspect]
     Indication: LOCALISED OSTEOARTHRITIS
     Route: 048
     Dates: start: 20010501, end: 20020128
  10. BACTRIM [Concomitant]
     Route: 065
  11. DARVOCET-N 100 [Concomitant]
     Indication: PAIN
     Route: 065
     Dates: start: 19850101
  12. CHONDROITIN [Concomitant]
     Route: 065
     Dates: start: 19960101
  13. VOLTAREN [Concomitant]
     Route: 065
     Dates: start: 19970101, end: 20010101
  14. EVENING PRIMROSE OIL [Concomitant]
     Route: 065
     Dates: start: 19960101
  15. GLUCOSAMINE [Concomitant]
     Route: 065
     Dates: start: 19960101
  16. HUMIBID [Concomitant]
     Indication: SINUS DISORDER
     Route: 065
     Dates: end: 20020128
  17. ENTEX CAP [Concomitant]
     Route: 065
  18. MAXZIDE [Concomitant]
     Indication: SWELLING
     Route: 065
     Dates: start: 19950101
  19. PREVACID [Concomitant]
     Indication: GASTROOESOPHAGEAL REFLUX DISEASE
     Route: 065
     Dates: start: 20010628

REACTIONS (4)
  - ACUTE MYOCARDIAL INFARCTION [None]
  - ARTERIOSPASM CORONARY [None]
  - DYSPEPSIA [None]
  - TACHYARRHYTHMIA [None]
